FAERS Safety Report 9748110 (Version 1)
Quarter: 2013Q4

REPORT INFORMATION
  Report Type: Spontaneous
  Country: US (occurrence: US)
  Receive Date: 20131212
  Receipt Date: 20131212
  Transmission Date: 20140711
  Serious: No
  Sender: FDA-Public Use
  Company Number: US-PFIZER INC-2013353941

PATIENT
  Age: 73 Year
  Sex: Female
  Weight: 52.6 kg

DRUGS (5)
  1. CHAPSTICK LIP BALM [Suspect]
     Indication: LIP DRY
     Dosage: UNK, AS NEEDED
     Dates: end: 201312
  2. GLUCOTROL [Suspect]
     Indication: DIABETES MELLITUS
     Dosage: 5 MG, 2X/DAY
  3. ENALAPRIL MALEATE [Concomitant]
     Indication: HYPERTENSION
     Dosage: 5 MG, DAILY
  4. VICODIN [Concomitant]
     Indication: PAIN
     Dosage: HYDROCODONE BITARTRATE(7.5MG), ACETAMINOPHEN(325MG), 3X/DAY
  5. VITAMIN D3 [Concomitant]
     Dosage: UNK

REACTIONS (5)
  - Lip disorder [Unknown]
  - Oral discomfort [Unknown]
  - Dry mouth [Unknown]
  - Poor quality drug administered [Unknown]
  - Product lot number issue [Unknown]
